FAERS Safety Report 19445533 (Version 1)
Quarter: 2021Q2

REPORT INFORMATION
  Report Type: Spontaneous
  Country: KR (occurrence: KR)
  Receive Date: 20210622
  Receipt Date: 20210622
  Transmission Date: 20210717
  Serious: Yes (Death, Life-Threatening, Other)
  Sender: FDA-Public Use
  Company Number: KR-CELLTRION INC.-2021KR008237

PATIENT

DRUGS (7)
  1. RITUXIMAB (UNKNOWN) [Suspect]
     Active Substance: RITUXIMAB
     Indication: NERVOUS SYSTEM DISORDER
  2. LENALIDOMIDE [Suspect]
     Active Substance: LENALIDOMIDE
     Indication: DIFFUSE LARGE B-CELL LYMPHOMA REFRACTORY
     Dosage: 25 MG PER DAY FOR 21 DAYS OF EACH 28?DAY CYCLE
  3. LENALIDOMIDE [Suspect]
     Active Substance: LENALIDOMIDE
     Indication: FOLLICULAR LYMPHOMA
  4. ASPIRIN. [Concomitant]
     Active Substance: ASPIRIN
     Indication: THROMBOSIS PROPHYLAXIS
     Dosage: 100 MG
  5. LENALIDOMIDE [Suspect]
     Active Substance: LENALIDOMIDE
     Indication: NERVOUS SYSTEM DISORDER
  6. RITUXIMAB (UNKNOWN) [Suspect]
     Active Substance: RITUXIMAB
     Indication: FOLLICULAR LYMPHOMA
  7. RITUXIMAB (UNKNOWN) [Suspect]
     Active Substance: RITUXIMAB
     Indication: DIFFUSE LARGE B-CELL LYMPHOMA REFRACTORY
     Dosage: 375 MG/M2 ON DAYS 1, 8, 15, AND 22 ON DAY AT THE 1ST CYCLE, THEN D1 EVERY CYCLE (RANGE: 1?7 CYCLES,
     Route: 042

REACTIONS (10)
  - Herpes zoster [Unknown]
  - Nephropathy toxic [Unknown]
  - Blood albumin decreased [Unknown]
  - Treatment failure [Unknown]
  - Thrombocytopenia [Unknown]
  - Anaemia [Unknown]
  - Neutropenia [Unknown]
  - Bacteraemia [Unknown]
  - Blood creatinine increased [Unknown]
  - Disease progression [Fatal]
